FAERS Safety Report 12998655 (Version 1)
Quarter: 2016Q4

REPORT INFORMATION
  Report Type: Not Available
  Country: None (occurrence: US)
  Receive Date: 20161205
  Receipt Date: 20161205
  Transmission Date: 20170207
  Serious: No
  Sender: FDA-Public Use
  Company Number: US-AKORN-33556

PATIENT
  Sex: Female

DRUGS (1)
  1. GENTAMICIN SULFATE OPHTHALMIC SOLUTION USP 0.3% [Suspect]
     Active Substance: GENTAMICIN SULFATE

REACTIONS (1)
  - Eye swelling [Unknown]
